FAERS Safety Report 11413752 (Version 2)
Quarter: 2015Q4

REPORT INFORMATION
  Report Type: Report from Study
  Country: US (occurrence: US)
  Receive Date: 20150824
  Receipt Date: 20151008
  Transmission Date: 20160304
  Serious: Yes (Other)
  Sender: FDA-Public Use
  Company Number: US-AMGEN-USASL2015085543

PATIENT
  Age: 58 Year
  Sex: Female

DRUGS (1)
  1. ENBREL [Suspect]
     Active Substance: ETANERCEPT
     Indication: RHEUMATOID ARTHRITIS
     Dosage: 50 MG, QWK
     Route: 065
     Dates: start: 2007

REACTIONS (9)
  - Injection site extravasation [Unknown]
  - Injection site swelling [Unknown]
  - Incorrect product storage [Unknown]
  - Injury associated with device [Unknown]
  - Rheumatoid arthritis [Unknown]
  - Device issue [Unknown]
  - Drug administration error [Unknown]
  - Injection site pain [Unknown]
  - Drug dose omission [Unknown]
